FAERS Safety Report 6549189-9 (Version None)
Quarter: 2010Q1

REPORT INFORMATION
  Report Type: 
  Country: None (occurrence: None)
  Receive Date: 20100119
  Receipt Date: 20100105
  Transmission Date: 20100710
  Serious: Yes (Other)
  Sender: FDA-Public Use
  Company Number: 2009FR0034

PATIENT
  Age: 6 Year
  Sex: Female

DRUGS (1)
  1. ORFADIN [Suspect]
     Indication: TYROSINAEMIA
     Dosage: 0.7 MG/KG (15 MG, 1 IN 1 D), ORAL
     Route: 048
     Dates: start: 20021010

REACTIONS (9)
  - ALPHA 1 FOETOPROTEIN INCREASED [None]
  - CYTOLYTIC HEPATITIS [None]
  - DRUG INEFFECTIVE [None]
  - DRUG LEVEL DECREASED [None]
  - HEPATIC ADENOMA [None]
  - HEPATIC ENZYME INCREASED [None]
  - MENTAL RETARDATION [None]
  - SPEECH DISORDER DEVELOPMENTAL [None]
  - TREATMENT NONCOMPLIANCE [None]
